FAERS Safety Report 23441021 (Version 1)
Quarter: 2024Q1

REPORT INFORMATION
  Report Type: Spontaneous
  Country: US (occurrence: US)
  Receive Date: 20240125
  Receipt Date: 20240125
  Transmission Date: 20240410
  Serious: Yes (Other)
  Sender: FDA-Public Use
  Company Number: US-SUN PHARMACEUTICAL INDUSTRIES LTD-2024R1-428429

PATIENT
  Age: 69 Year
  Sex: Female

DRUGS (1)
  1. DESMOPRESSIN [Suspect]
     Active Substance: DESMOPRESSIN
     Indication: Polyuria
     Dosage: 15 MICROGRAM/KILOGRAM, DAILY
     Route: 065

REACTIONS (2)
  - Therapy non-responder [Unknown]
  - Congenital nephrogenic diabetes insipidus [Unknown]
